FAERS Safety Report 6929338-0 (Version None)
Quarter: 2010Q3

REPORT INFORMATION
  Report Type: 
  Country: None (occurrence: None)
  Receive Date: 20100818
  Receipt Date: 20100726
  Transmission Date: 20110219
  Serious: Yes (Other)
  Sender: FDA-Public Use
  Company Number: FR-BAYER-201029498GPV

PATIENT
  Age: 54 Year
  Sex: Male
  Weight: 66 kg

DRUGS (4)
  1. NEXAVAR [Suspect]
     Indication: GASTROINTESTINAL STROMAL TUMOUR
     Dosage: TOTAL DAILY DOSE: 800 MG  UNIT DOSE: 200 MG
     Route: 048
     Dates: start: 20100528
  2. SMECTA [Concomitant]
     Indication: DIARRHOEA
     Dosage: TOTAL DAILY DOSE: 6 DF
     Route: 048
     Dates: start: 20091022
  3. LANSOPRAZOLE [Concomitant]
     Dosage: TOTAL DAILY DOSE: 1 DF
     Route: 048
     Dates: start: 20091012
  4. IBUPROFEN [Concomitant]
     Indication: PAIN
     Dosage: TOTAL DAILY DOSE: 4 DF

REACTIONS (12)
  - ALOPECIA [None]
  - ARTHRALGIA [None]
  - BLISTER [None]
  - BURNING SENSATION [None]
  - DIARRHOEA [None]
  - GINGIVAL DISORDER [None]
  - GLOSSODYNIA [None]
  - HYPOAESTHESIA [None]
  - MUSCLE CONTRACTIONS INVOLUNTARY [None]
  - MYALGIA [None]
  - PALMAR-PLANTAR ERYTHRODYSAESTHESIA SYNDROME [None]
  - SKIN BURNING SENSATION [None]
